FAERS Safety Report 14894553 (Version 1)
Quarter: 2018Q2

REPORT INFORMATION
  Report Type: Spontaneous
  Country: FR (occurrence: FR)
  Receive Date: 20180515
  Receipt Date: 20180515
  Transmission Date: 20180711
  Serious: Yes (Other)
  Sender: FDA-Public Use
  Company Number: FR-009507513-1805FRA002689

PATIENT
  Age: 14 Year
  Sex: Male

DRUGS (1)
  1. CELESTENE 4MG/1ML [Suspect]
     Active Substance: BETAMETHASONE
     Indication: CHRONIC SINUSITIS
     Dosage: UNK

REACTIONS (2)
  - Nerve injury [Unknown]
  - Off label use [Unknown]

NARRATIVE: CASE EVENT DATE: 20180418
